FAERS Safety Report 17619046 (Version 9)
Quarter: 2020Q3

REPORT INFORMATION
  Report Type: Spontaneous
  Country: US (occurrence: US)
  Receive Date: 20200402
  Receipt Date: 20200821
  Transmission Date: 20201102
  Serious: Yes (Hospitalization)
  Sender: FDA-Public Use
  Company Number: US-ACTELION-A-NJ2020-203856

PATIENT
  Sex: Female
  Weight: 86.62 kg

DRUGS (4)
  1. VELETRI [Suspect]
     Active Substance: EPOPROSTENOL
     Dosage: 44 NG/KG, PER MIN
     Route: 042
  2. TADALAFIL. [Suspect]
     Active Substance: TADALAFIL
     Indication: PRODUCT USED FOR UNKNOWN INDICATION
     Route: 065
  3. OPSUMIT [Suspect]
     Active Substance: MACITENTAN
     Indication: PULMONARY ARTERIAL HYPERTENSION
     Dosage: 10 MG, QD
     Route: 048
  4. VELETRI [Suspect]
     Active Substance: EPOPROSTENOL
     Indication: PULMONARY ARTERIAL HYPERTENSION
     Dosage: 40 NG/KG, PER MIN
     Route: 042

REACTIONS (15)
  - Pruritus [Unknown]
  - Hospitalisation [Unknown]
  - Nausea [Not Recovered/Not Resolved]
  - Pain in extremity [Not Recovered/Not Resolved]
  - Skin exfoliation [Unknown]
  - Pain in jaw [Not Recovered/Not Resolved]
  - Catheterisation cardiac [Unknown]
  - Medical device implantation [Unknown]
  - Nasal congestion [Unknown]
  - Oedema peripheral [Not Recovered/Not Resolved]
  - Rash [Unknown]
  - Adverse event [Unknown]
  - Catheter site erythema [Unknown]
  - Erythema [Unknown]
  - Muscle spasms [Unknown]
